FAERS Safety Report 19483510 (Version 2)
Quarter: 2021Q3

REPORT INFORMATION
  Report Type: Spontaneous
  Country: JP (occurrence: JP)
  Receive Date: 20210701
  Receipt Date: 20210730
  Transmission Date: 20211014
  Serious: Yes (Life-Threatening, Hospitalization, Other)
  Sender: FDA-Public Use
  Company Number: JP-PFIZER INC-2021712400

PATIENT
  Age: 94 Year
  Sex: Female

DRUGS (4)
  1. FERROMIA [Concomitant]
     Active Substance: SODIUM FERROUS CITRATE
     Indication: ANAEMIA
     Dosage: 2 TABLET, 2X/DAY IN THE MORNING AND EVENING
     Route: 048
     Dates: end: 20210702
  2. COMIRNATY [Suspect]
     Active Substance: TOZINAMERAN
     Indication: COVID-19 IMMUNISATION
     Dosage: DOSE 1, SINGLE
     Dates: start: 20210610, end: 20210610
  3. AMLODIPINE BESILATE [Suspect]
     Active Substance: AMLODIPINE BESYLATE
     Indication: HYPERTENSION
     Dosage: 1 TABLET, 1X/DAY IN THE MORNING
     Route: 048
     Dates: end: 20210702
  4. AMITIZA [Concomitant]
     Active Substance: LUBIPROSTONE
     Indication: CONSTIPATION
     Dosage: 2 CAPSULES, 2X/DAY IN THE MORNING AND EVENING
     Route: 048
     Dates: end: 20210702

REACTIONS (7)
  - Musculoskeletal stiffness [Recovered/Resolved]
  - Foaming at mouth [Recovered/Resolved]
  - Altered state of consciousness [Recovered/Resolved]
  - Anaphylactic shock [Recovered/Resolved]
  - Loss of consciousness [Recovered/Resolved]
  - Radial pulse abnormal [Recovered/Resolved]
  - Yawning [Recovered/Resolved]

NARRATIVE: CASE EVENT DATE: 20210610
